FAERS Safety Report 20606918 (Version 1)
Quarter: 2022Q1

REPORT INFORMATION
  Report Type: Spontaneous
  Country: US (occurrence: None)
  Receive Date: 20220316
  Receipt Date: 20220316
  Transmission Date: 20220423
  Serious: No
  Sender: FDA-Public Use
  Company Number: None

PATIENT
  Sex: Female

DRUGS (1)
  1. HUMIRA [Suspect]
     Active Substance: ADALIMUMAB
     Indication: Psoriatic arthropathy
     Dosage: OTHER QUANTITY : 40MG/0.4ML ;?FREQUENCY : EVERY OTHER WEEK;?
     Route: 058
     Dates: start: 202202

REACTIONS (3)
  - Mood altered [None]
  - Anxiety [None]
  - Drug ineffective [None]
